FAERS Safety Report 5130279-2 (Version None)
Quarter: 2006Q4

REPORT INFORMATION
  Report Type: 
  Country: None (occurrence: None)
  Receive Date: 20061019
  Receipt Date: 20061005
  Transmission Date: 20070319
  Serious: Yes (Other)
  Sender: FDA-Public Use
  Company Number: PHBS2006BR15502

PATIENT
  Sex: Female
  Weight: 56 kg

DRUGS (1)
  1. DIOVAN HCT [Suspect]
     Indication: HYPERTENSION
     Dosage: VALS 160 / HCT 12.5 MG/DAY
     Route: 048
     Dates: start: 20060301, end: 20060926

REACTIONS (3)
  - AMNESIA [None]
  - DYSGRAPHIA [None]
  - FEELING ABNORMAL [None]
